FAERS Safety Report 10478586 (Version 2)
Quarter: 2015Q1

REPORT INFORMATION
  Report Type: Spontaneous
  Country: CA (occurrence: CA)
  Receive Date: 20140926
  Receipt Date: 20150212
  Transmission Date: 20150720
  Serious: Yes (Hospitalization, Other)
  Sender: FDA-Public Use
  Company Number: CA-SA-2014SA126455

PATIENT
  Sex: Male

DRUGS (4)
  1. XELJANZ [Suspect]
     Active Substance: TOFACITINIB CITRATE
     Indication: RHEUMATOID ARTHRITIS
     Route: 048
     Dates: start: 20140707, end: 201410
  2. LASIX [Suspect]
     Active Substance: FUROSEMIDE
     Indication: SWELLING
     Route: 065
  3. PREDNISONE. [Concomitant]
     Active Substance: PREDNISONE
  4. DICLOFENAC [Concomitant]
     Active Substance: DICLOFENAC
     Indication: PAIN

REACTIONS (9)
  - Cardiomegaly [Unknown]
  - Fatigue [Unknown]
  - Swelling [Recovering/Resolving]
  - Weight increased [Unknown]
  - Oxygen saturation decreased [Unknown]
  - Musculoskeletal stiffness [Recovering/Resolving]
  - Fluid retention [Unknown]
  - General physical health deterioration [Unknown]
  - Pain [Recovering/Resolving]
